FAERS Safety Report 9597623 (Version 2)
Quarter: 2013Q4

REPORT INFORMATION
  Report Type: Spontaneous
  Country: IT (occurrence: IT)
  Receive Date: 20131004
  Receipt Date: 20131028
  Transmission Date: 20140711
  Serious: Yes (Hospitalization)
  Sender: FDA-Public Use
  Company Number: IT-BRISTOL-MYERS SQUIBB COMPANY-19435288

PATIENT
  Age: 80 Year
  Sex: Female

DRUGS (10)
  1. COUMADIN TABS 5 MG [Suspect]
  2. FUROSEMIDE [Suspect]
     Dosage: TABS?1DF: 4UNITS
     Route: 048
  3. BISOPROLOL HEMIFUMARATE [Concomitant]
     Dosage: 1DF: 1 UNIT
  4. HUMALOG [Concomitant]
     Route: 058
  5. LANTUS [Concomitant]
     Route: 058
  6. LERCADIP [Concomitant]
     Dosage: TABS
     Route: 048
  7. LORTAAN [Concomitant]
     Dosage: 50MG TABS
  8. CATAPRESAN [Concomitant]
     Dosage: TABS?3 UNITS
  9. KANRENOL [Concomitant]
     Dosage: 2 UNITS?TABS
  10. LANOXIN [Concomitant]
     Dosage: TABS?1 UNIT

REACTIONS (3)
  - Oliguria [Unknown]
  - Malaise [Unknown]
  - International normalised ratio increased [Unknown]
